FAERS Safety Report 16812214 (Version 3)
Quarter: 2019Q4

REPORT INFORMATION
  Report Type: Spontaneous
  Country: JP (occurrence: JP)
  Receive Date: 20190916
  Receipt Date: 20191114
  Transmission Date: 20200122
  Serious: Yes (Life-Threatening, Hospitalization, Other)
  Sender: FDA-Public Use
  Company Number: JP-SA-2019SA253675

PATIENT
  Age: 40 Year
  Sex: Female
  Weight: 52.8 kg

DRUGS (11)
  1. PREDNISOLONE. [Suspect]
     Active Substance: PREDNISOLONE
     Indication: STEVENS-JOHNSON SYNDROME
     Dosage: 1 MG/KG, QD
     Route: 048
  2. CLOMIFENE CITRATE [Suspect]
     Active Substance: CLOMIPHENE
     Indication: INFERTILITY
     Dosage: ADMINISTERED 5 DAYS EVERY MONTH
     Route: 048
  3. METHYLPREDNISOLONE. [Suspect]
     Active Substance: METHYLPREDNISOLONE
     Indication: STEVENS-JOHNSON SYNDROME
     Dosage: METHYLPREDNISOLONE PULSE THERAPY (1000 MG/DAY FOR 3 CONSECUTIVE DAYS
  4. MEDROXYPROGESTERONE ACETATE. [Suspect]
     Active Substance: MEDROXYPROGESTERONE ACETATE
     Indication: INFERTILITY
     Dosage: ADMINISTERED DAILY
     Route: 048
  5. METHYLPREDNISOLONE. [Suspect]
     Active Substance: METHYLPREDNISOLONE
     Indication: KERATITIS
     Dosage: THE SECOND COURSE OF METHYLPREDNISOLONE PULSE THERAPY WAS INITIATED ON DAY 9
  6. METHYLPREDNISOLONE. [Suspect]
     Active Substance: METHYLPREDNISOLONE
     Indication: CONJUNCTIVITIS
  7. CEFDINIR. [Concomitant]
     Active Substance: CEFDINIR
     Indication: INFECTION PROPHYLAXIS
     Dosage: 2 DAYS EVERY MONTH
     Route: 048
  8. CABERGOLINE. [Suspect]
     Active Substance: CABERGOLINE
     Indication: INFERTILITY
     Dosage: ADMINISTERED WEEKLY
     Route: 048
  9. PREDNISOLONE. [Suspect]
     Active Substance: PREDNISOLONE
     Indication: CONJUNCTIVITIS
  10. PREDNISOLONE. [Suspect]
     Active Substance: PREDNISOLONE
     Indication: KERATITIS
  11. HUMAN CHORIONIC GONADOTROPIN [Suspect]
     Active Substance: GONADOTROPHIN, CHORIONIC
     Indication: INFERTILITY
     Dosage: ADMINISTERED WEEKLY OR BIWEEKLY
     Route: 030

REACTIONS (22)
  - Palpable purpura [Recovered/Resolved]
  - Skin lesion [Recovered/Resolved]
  - Keratitis [Not Recovered/Not Resolved]
  - Conjunctivitis [Not Recovered/Not Resolved]
  - Drug ineffective [Recovered/Resolved]
  - Glaucoma [Unknown]
  - Skin erosion [Recovered/Resolved]
  - Blister [Recovered/Resolved]
  - Hypophagia [Recovering/Resolving]
  - Condition aggravated [Recovering/Resolving]
  - Vision blurred [Recovered/Resolved]
  - Conjunctival hyperaemia [Recovered/Resolved]
  - Stevens-Johnson syndrome [Recovered/Resolved]
  - Lip erosion [Recovered/Resolved]
  - Oral mucosa erosion [Recovered/Resolved]
  - Leukocytosis [Recovered/Resolved]
  - Vulval ulceration [Recovered/Resolved]
  - Rash [Recovered/Resolved]
  - Erythema [Recovered/Resolved]
  - Pyrexia [Recovered/Resolved]
  - Mucosal inflammation [Recovered/Resolved]
  - Dry eye [Not Recovered/Not Resolved]
